FAERS Safety Report 8901261 (Version 1)
Quarter: 2012Q4

REPORT INFORMATION
  Report Type: 
  Country: US (occurrence: US)
  Receive Date: 20121109
  Receipt Date: 20121109
  Transmission Date: 20130627
  Serious: Yes (Hospitalization, Other)
  Sender: FDA-Public Use
  Company Number: US-WATSON-2012-18673

PATIENT
  Age: 36 Year
  Sex: Female
  Weight: 82 kg

DRUGS (5)
  1. LOW-OGESTREL [Suspect]
     Indication: CONTRACEPTION
     Dosage: one pill daily
     Route: 048
     Dates: start: 20110704
  2. LOW-OGESTREL [Suspect]
     Dosage: one pill daily
     Route: 048
     Dates: start: 201007, end: 20110703
  3. METFORMIN [Concomitant]
     Indication: PROPHYLAXIS
     Dosage: 750mg, one pill daily
     Route: 048
     Dates: start: 2007
  4. SPIRONOLACTONE [Concomitant]
     Indication: PROPHYLAXIS
     Dosage: 50mg, one pill daily
     Route: 048
     Dates: start: 2007
  5. ZYRTEC [Concomitant]
     Indication: HYPERSENSITIVITY
     Dosage: 10mg, one pill daily
     Route: 048
     Dates: start: 2002

REACTIONS (4)
  - Subarachnoid haemorrhage [Recovered/Resolved]
  - Intracranial venous sinus thrombosis [Recovered/Resolved]
  - Headache [Recovered/Resolved]
  - Vomiting [Recovered/Resolved]
